FAERS Safety Report 16326817 (Version 2)
Quarter: 2019Q3

REPORT INFORMATION
  Report Type: Spontaneous
  Country: US (occurrence: US)
  Receive Date: 20190517
  Receipt Date: 20190815
  Transmission Date: 20191004
  Serious: Yes (Other)
  Sender: FDA-Public Use
  Company Number: US-AQUESTIVE THERAPEUTICS, INC.-2019AQU00008

PATIENT
  Age: 52 Year
  Sex: Male
  Weight: 76.42 kg

DRUGS (7)
  1. TWO UNSPECIFIED ANTI-EPILEPTIC DRUGS [Concomitant]
  2. SUMATRIPTAN SUCCINATE. [Concomitant]
     Active Substance: SUMATRIPTAN SUCCINATE
  3. LIDOCAINE. [Concomitant]
     Active Substance: LIDOCAINE
  4. SYMPAZAN [Suspect]
     Active Substance: CLOBAZAM
     Indication: PARTIAL SEIZURES
     Dosage: UNK
     Dates: start: 20190330, end: 20190401
  5. AMBIEN [Concomitant]
     Active Substance: ZOLPIDEM TARTRATE
  6. AJOVY [Concomitant]
     Active Substance: FREMANEZUMAB-VFRM
  7. ATENOLOL. [Concomitant]
     Active Substance: ATENOLOL

REACTIONS (7)
  - Claustrophobia [Recovered/Resolved]
  - Electrolyte imbalance [Recovered/Resolved]
  - Headache [Recovered/Resolved]
  - Psychomotor hyperactivity [Recovered/Resolved]
  - Adverse drug reaction [Recovered/Resolved]
  - Suicidal ideation [Recovered/Resolved]
  - Off label use [Recovered/Resolved]

NARRATIVE: CASE EVENT DATE: 20190330
